FAERS Safety Report 11588644 (Version 2)
Quarter: 2015Q4

REPORT INFORMATION
  Report Type: Report from Study
  Country: US (occurrence: US)
  Receive Date: 20151002
  Receipt Date: 20151006
  Transmission Date: 20160304
  Serious: Yes (Other)
  Sender: FDA-Public Use
  Company Number: US-GILEAD-2015-0162129

PATIENT
  Age: 49 Year
  Sex: Female

DRUGS (3)
  1. AMBRISENTAN [Suspect]
     Active Substance: AMBRISENTAN
     Indication: PULMONARY HYPERTENSION
  2. AMBRISENTAN [Suspect]
     Active Substance: AMBRISENTAN
     Indication: DERMATOMYOSITIS
     Dosage: 10 MG, QD
     Route: 065
     Dates: start: 20140507
  3. ADCIRCA [Concomitant]
     Active Substance: TADALAFIL
     Dosage: UNK

REACTIONS (11)
  - Chest wall mass [Unknown]
  - Dyspnoea [Unknown]
  - Presyncope [Unknown]
  - Catheterisation cardiac [Unknown]
  - Chest discomfort [Unknown]
  - Swelling [Unknown]
  - Palpitations [Unknown]
  - Chest pain [Unknown]
  - Neoplasm malignant [Unknown]
  - Cough [Unknown]
  - Dyspnoea exertional [Unknown]

NARRATIVE: CASE EVENT DATE: 2015
